FAERS Safety Report 21844889 (Version 1)
Quarter: 2023Q1

REPORT INFORMATION
  Report Type: Spontaneous
  Country: None (occurrence: US)
  Receive Date: 20230110
  Receipt Date: 20230110
  Transmission Date: 20230417
  Serious: No
  Sender: FDA-Public Use
  Company Number: US-Sofgen Pharmaceuticals, LLC-2136569

PATIENT
  Age: 86 Year
  Sex: Female
  Weight: 57 kg

DRUGS (1)
  1. IBUPROFEN [Suspect]
     Active Substance: IBUPROFEN
     Indication: Pain
     Route: 048
     Dates: start: 20221101

REACTIONS (5)
  - Choking [Recovered/Resolved]
  - Retching [Recovered/Resolved]
  - Foreign body in throat [Recovered/Resolved]
  - Oropharyngeal pain [Recovered/Resolved]
  - Incorrect product administration duration [Unknown]

NARRATIVE: CASE EVENT DATE: 20221101
